FAERS Safety Report 9063258 (Version 3)
Quarter: 2013Q1

REPORT INFORMATION
  Report Type: Spontaneous
  Country: JP (occurrence: JP)
  Receive Date: 20130213
  Receipt Date: 20130304
  Transmission Date: 20140127
  Serious: Yes (Other)
  Sender: FDA-Public Use
  Company Number: JP-GLAXOSMITHKLINE-B0866273A

PATIENT
  Age: 63 None
  Sex: Male
  Weight: 65 kg

DRUGS (4)
  1. VALTREX [Suspect]
     Indication: HERPES SIMPLEX
     Dosage: 1000MG PER DAY
     Route: 048
     Dates: start: 20130130, end: 20130131
  2. CHINESE MEDICINE [Concomitant]
     Dosage: 2.5G THREE TIMES PER DAY
     Route: 048
  3. MOSAPRIDE CITRATE [Concomitant]
     Dosage: 5MG THREE TIMES PER DAY
     Route: 048
  4. ARASENA-A [Concomitant]
     Route: 061

REACTIONS (5)
  - Stevens-Johnson syndrome [Unknown]
  - Ocular hyperaemia [Unknown]
  - Eye pain [Unknown]
  - Eye discharge [Unknown]
  - Drug administration error [Unknown]
